FAERS Safety Report 16932461 (Version 1)
Quarter: 2019Q4

REPORT INFORMATION
  Report Type: Other
  Country: US (occurrence: US)
  Receive Date: 20191017
  Receipt Date: 20191017
  Transmission Date: 20200122
  Serious: Yes (Life-Threatening, Hospitalization)
  Sender: FDA-Public Use
  Company Number: US-NOSTRUM LABORATORIES, INC.-2075802

PATIENT
  Age: 42 Year
  Sex: Female

DRUGS (1)
  1. PROMETHAZINE HYDROCHLORIDE. [Suspect]
     Active Substance: PROMETHAZINE HYDROCHLORIDE
     Indication: BORDERLINE LEPROSY
     Route: 048

REACTIONS (3)
  - Drug-induced liver injury [Unknown]
  - Drug hypersensitivity [Unknown]
  - Hypersensitivity pneumonitis [Unknown]
